FAERS Safety Report 6924161-5 (Version None)
Quarter: 2010Q3

REPORT INFORMATION
  Report Type: 
  Country: None (occurrence: None)
  Receive Date: 20100812
  Receipt Date: 20100812
  Transmission Date: 20110219
  Serious: Yes (Hospitalization)
  Sender: FDA-Public Use
  Company Number: None

PATIENT
  Age: 16 Year
  Sex: Male
  Weight: 80.6 kg

DRUGS (1)
  1. PREGABALIN [Suspect]
     Indication: NEURALGIA
     Dosage: 75 MG TWICE DAILY PO
     Route: 048
     Dates: start: 20100622, end: 20100805

REACTIONS (4)
  - CONTUSION [None]
  - ERYTHEMA [None]
  - LIP SWELLING [None]
  - PLATELET COUNT DECREASED [None]
